FAERS Safety Report 4957733-8 (Version None)
Quarter: 2006Q1

REPORT INFORMATION
  Report Type: 
  Country: None (occurrence: None)
  Receive Date: 20060324
  Receipt Date: 20060316
  Transmission Date: 20060701
  Serious: Yes (Other)
  Sender: FDA-Public Use
  Company Number: 2006037890

PATIENT
  Age: 57 Year
  Sex: Female
  Weight: 79.3795 kg

DRUGS (7)
  1. NEURONTIN [Suspect]
     Indication: SPINAL CORD INJURY
     Dosage: (400 MG, 2 IN 1 D), ORAL
     Route: 048
  2. DETROL LA [Concomitant]
     Indication: INCONTINENCE
     Dosage: 8 MG (4 MG, 2 IN 1 D), ORAL
     Route: 048
     Dates: start: 20050101
  3. BACLOFEN [Concomitant]
  4. AMITRIPTYLINE (AMITRIPTYLINE) [Concomitant]
  5. HYDROCODONE BITARTRATE [Concomitant]
  6. PAXIL [Concomitant]
  7. MYLANA (ALUMINIUM HYDROXIDE, MAGNESIUM HYDROXIDE, SIMETHICONE) [Concomitant]

REACTIONS (5)
  - ABASIA [None]
  - AMNESIA [None]
  - INAPPROPRIATE SCHEDULE OF DRUG ADMINISTRATION [None]
  - MUSCLE DISORDER [None]
  - WHEELCHAIR USER [None]
